FAERS Safety Report 10251821 (Version 3)
Quarter: 2014Q3

REPORT INFORMATION
  Report Type: Spontaneous
  Country: FR (occurrence: FR)
  Receive Date: 20140623
  Receipt Date: 20140726
  Transmission Date: 20150326
  Serious: Yes (Hospitalization, Other)
  Sender: FDA-Public Use
  Company Number: FR-AMGEN-FRASP2014024925

PATIENT
  Sex: Male

DRUGS (1)
  1. PROLIA [Suspect]
     Active Substance: DENOSUMAB
     Indication: OSTEOPOROSIS
     Dosage: 60 MG, Q6MO
     Route: 058
     Dates: start: 20140308

REACTIONS (6)
  - Hypocalcaemia [Unknown]
  - Cholangitis sclerosing [Unknown]
  - Drug hypersensitivity [Unknown]
  - Type 1 diabetes mellitus [Unknown]
  - Colitis ulcerative [Unknown]
  - Drug intolerance [Unknown]
